FAERS Safety Report 19488730 (Version 1)
Quarter: 2021Q3

REPORT INFORMATION
  Report Type: Spontaneous
  Country: NL (occurrence: NL)
  Receive Date: 20210702
  Receipt Date: 20210702
  Transmission Date: 20211014
  Serious: Yes (Other)
  Sender: FDA-Public Use
  Company Number: NL-BAUSCH-BL-2021-022587

PATIENT
  Age: 63 Year
  Sex: Female
  Weight: 64 kg

DRUGS (2)
  1. ARTIFICIAL TEARS [Concomitant]
     Active Substance: GLYCERIN\HYPROMELLOSES\POLYETHYLENE GLYCOL 400
  2. YELLOX [Suspect]
     Active Substance: BROMFENAC SODIUM
     Indication: EYE PAIN
     Dosage: 2 TIMES A DAY. EYE DROPS 0.9MG/ML
     Route: 065
     Dates: end: 20210604

REACTIONS (4)
  - Therapeutic response unexpected [Unknown]
  - Rhinalgia [Not Recovered/Not Resolved]
  - Application site erosion [Not Recovered/Not Resolved]
  - Eye pain [Not Recovered/Not Resolved]

NARRATIVE: CASE EVENT DATE: 20210312
